FAERS Safety Report 15823610 (Version 1)
Quarter: 2019Q1

REPORT INFORMATION
  Report Type: Spontaneous
  Country: US (occurrence: US)
  Receive Date: 20190114
  Receipt Date: 20190114
  Transmission Date: 20190417
  Serious: Yes (Other)
  Sender: FDA-Public Use
  Company Number: US-ELEFSEE PHARMACEUTICALS INTERNATIONAL-US-2019WTD000001

PATIENT

DRUGS (3)
  1. MIDAZOLAM [Concomitant]
     Active Substance: MIDAZOLAM HYDROCHLORIDE
     Indication: SEDATION
     Dosage: UNK
     Route: 042
  2. FENTANYL. [Suspect]
     Active Substance: FENTANYL
     Indication: SEDATION
     Dosage: UNK
     Route: 042
  3. LIDOCAINE. [Concomitant]
     Active Substance: LIDOCAINE
     Indication: LOCAL ANAESTHESIA
     Dosage: UNK

REACTIONS (2)
  - Apnoea [Unknown]
  - Accidental overdose [Unknown]
